FAERS Safety Report 13259432 (Version 1)
Quarter: 2017Q1

REPORT INFORMATION
  Report Type: Spontaneous
  Country: US (occurrence: US)
  Receive Date: 20170222
  Receipt Date: 20170222
  Transmission Date: 20170428
  Serious: No
  Sender: FDA-Public Use
  Company Number: US-PFIZER INC-2017077138

PATIENT
  Sex: Female

DRUGS (1)
  1. XELJANZ [Suspect]
     Active Substance: TOFACITINIB CITRATE
     Dosage: 5 MG, UNK

REACTIONS (4)
  - Joint swelling [Recovering/Resolving]
  - Swelling [Recovering/Resolving]
  - Peripheral swelling [Recovering/Resolving]
  - Musculoskeletal stiffness [Recovering/Resolving]
